FAERS Safety Report 4459548-6 (Version None)
Quarter: 2004Q3

REPORT INFORMATION
  Report Type: 
  Country: None (occurrence: None)
  Receive Date: 20040910
  Receipt Date: 20040519
  Transmission Date: 20050211
  Serious: No
  Sender: FDA-Public Use
  Company Number: 2004214416US

PATIENT
  Age: 46 Year
  Sex: Female
  Weight: 53.5 kg

DRUGS (4)
  1. BEXTRA [Suspect]
     Indication: ARTHRALGIA
     Dosage: 20 MG
     Dates: start: 20040324, end: 20040325
  2. TRILEPTAL [Concomitant]
  3. NEURONTIN [Concomitant]
  4. AVONEX [Concomitant]

REACTIONS (3)
  - FEELING COLD [None]
  - HYPOAESTHESIA [None]
  - PAIN IN EXTREMITY [None]
